FAERS Safety Report 9726003 (Version 2)
Quarter: 2013Q4

REPORT INFORMATION
  Report Type: Spontaneous
  Country: BG (occurrence: BG)
  Receive Date: 20131203
  Receipt Date: 20131211
  Transmission Date: 20140711
  Serious: Yes (Other)
  Sender: FDA-Public Use
  Company Number: BG-VERTEX PHARMACEUTICALS INC-2013-011497

PATIENT
  Age: 46 Year
  Sex: Female
  Weight: 48 kg

DRUGS (4)
  1. INCIVO [Suspect]
     Indication: CHRONIC HEPATITIS C
     Dosage: 750 MG, TID
     Route: 048
     Dates: start: 20130516, end: 20130711
  2. PEGASYS [Suspect]
     Indication: CHRONIC HEPATITIS C
     Dosage: 90 ?G, QW
     Route: 058
     Dates: start: 20130412
  3. COPEGUS [Suspect]
     Indication: CHRONIC HEPATITIS C
     Dosage: 200 MG, QD
     Route: 048
     Dates: start: 20130412
  4. VITAMIN D [Concomitant]
     Indication: VITAMIN D DEFICIENCY
     Dosage: 5 GTT, QD
     Route: 048
     Dates: start: 201304

REACTIONS (3)
  - Leukopenia [Recovered/Resolved]
  - Fatigue [Recovered/Resolved]
  - Anal pruritus [Recovered/Resolved]
